FAERS Safety Report 18572732 (Version 1)
Quarter: 2020Q4

REPORT INFORMATION
  Report Type: Spontaneous
  Country: CG (occurrence: CG)
  Receive Date: 20201202
  Receipt Date: 20201202
  Transmission Date: 20210114
  Serious: No
  Sender: FDA-Public Use
  Company Number: CG-LUPIN PHARMACEUTICALS INC.-2020-08098

PATIENT

DRUGS (8)
  1. CYCLOSERINE. [Suspect]
     Active Substance: CYCLOSERINE
     Indication: TUBERCULOSIS
     Dosage: 6-MONTH INTENSIVE PHASE THERAPY
     Route: 048
  2. CLOFAZIMINE [Suspect]
     Active Substance: CLOFAZIMINE
     Indication: TUBERCULOSIS
     Dosage: 6-MONTH INTENSIVE PHASE THERAPY
     Route: 048
  3. BEDAQUILINE [Suspect]
     Active Substance: BEDAQUILINE
     Indication: TUBERCULOSIS
     Dosage: 6-MONTH INTENSIVE PHASE THERAPY
     Route: 048
  4. CYCLOSERINE. [Suspect]
     Active Substance: CYCLOSERINE
     Dosage: 14-MONTH CONTINUATION PHASE THERAPY
     Route: 048
  5. CLOFAZIMINE [Suspect]
     Active Substance: CLOFAZIMINE
     Dosage: 14-MONTH CONTINUATION PHASE THERAPY
     Route: 048
  6. DELAMANID [Suspect]
     Active Substance: DELAMANID
     Indication: TUBERCULOSIS
     Dosage: 6-MONTH INTENSIVE PHASE THERAPY
     Route: 048
  7. LINEZOLID. [Suspect]
     Active Substance: LINEZOLID
     Indication: TUBERCULOSIS
     Dosage: 6-MONTH INTENSIVE PHASE THERAPY
     Route: 048
  8. LINEZOLID. [Suspect]
     Active Substance: LINEZOLID
     Dosage: 14-MONTH CONTINUATION PHASE THERAPY
     Route: 048

REACTIONS (1)
  - Arthralgia [Unknown]
